FAERS Safety Report 5767602-1 (Version None)
Quarter: 2008Q2

REPORT INFORMATION
  Report Type: 
  Country: None (occurrence: None)
  Receive Date: 20080611
  Receipt Date: 20080611
  Transmission Date: 20081010
  Serious: Yes (Hospitalization)
  Sender: FDA-Public Use
  Company Number: None

PATIENT
  Age: 85 Year
  Sex: Male
  Weight: 59 kg

DRUGS (1)
  1. ENOXAPARIN SODIUM [Suspect]
     Indication: PULMONARY EMBOLISM
     Dosage: 60MG BID SQ
     Route: 058
     Dates: start: 20080501, end: 20080508

REACTIONS (2)
  - HAEMATOMA [None]
  - PULMONARY EMBOLISM [None]
